FAERS Safety Report 9095171 (Version 1)
Quarter: 2013Q1

REPORT INFORMATION
  Report Type: Report from Study
  Country: US (occurrence: US)
  Receive Date: 20130201
  Receipt Date: 20130201
  Transmission Date: 20140127
  Serious: No
  Sender: FDA-Public Use
  Company Number: US-ABBOTT-12P-163-1027555-00

PATIENT
  Age: 41 Year
  Sex: Female

DRUGS (3)
  1. HUMIRA [Suspect]
     Indication: ANKYLOSING SPONDYLITIS
     Dates: start: 201209
  2. LEVOTHYROXINE [Concomitant]
     Indication: HYPOTHYROIDISM
  3. EVAMIST [Concomitant]
     Indication: HORMONE REPLACEMENT THERAPY
     Dosage: 2 SQUIRTS IN EACH NOSTRIL 1 IN THE AM 1 IN THE PM

REACTIONS (2)
  - Oropharyngeal pain [Not Recovered/Not Resolved]
  - Influenza [Recovering/Resolving]
